FAERS Safety Report 13273896 (Version 3)
Quarter: 2017Q2

REPORT INFORMATION
  Report Type: Report from Study
  Country: None (occurrence: US)
  Receive Date: 20170227
  Receipt Date: 20170517
  Transmission Date: 20170830
  Serious: Yes (Other)
  Sender: FDA-Public Use
  Company Number: US-ABBVIE-17P-163-1842276-00

PATIENT
  Sex: Female

DRUGS (2)
  1. HUMIRA [Suspect]
     Active Substance: ADALIMUMAB
     Indication: PSORIATIC ARTHROPATHY
  2. HUMIRA [Suspect]
     Active Substance: ADALIMUMAB
     Indication: PSORIASIS
     Route: 058
     Dates: end: 20170219

REACTIONS (10)
  - Type 2 diabetes mellitus [Unknown]
  - Psoriasis [Unknown]
  - Back pain [Unknown]
  - Intervertebral disc degeneration [Unknown]
  - Sinus disorder [Unknown]
  - Osteoarthritis [Unknown]
  - Post procedural cellulitis [Unknown]
  - Hernia [Unknown]
  - Cough [Unknown]
  - Stress [Unknown]

NARRATIVE: CASE EVENT DATE: 2017
